FAERS Safety Report 5126955-8 (Version None)
Quarter: 2006Q4

REPORT INFORMATION
  Report Type: 
  Country: None (occurrence: None)
  Receive Date: 20061013
  Receipt Date: 20061005
  Transmission Date: 20070319
  Serious: Yes (Hospitalization)
  Sender: FDA-Public Use
  Company Number: US-AMGEN-US195861

PATIENT
  Age: 63 Year
  Sex: Female

DRUGS (7)
  1. NEULASTA [Suspect]
     Indication: CHEMOTHERAPY
     Route: 058
     Dates: start: 20060901
  2. TAXOTERE [Concomitant]
     Route: 065
     Dates: start: 20060901
  3. ADRIAMYCIN PFS [Concomitant]
     Route: 065
     Dates: start: 20060901
  4. CYTOXAN [Concomitant]
     Route: 065
     Dates: start: 20060901
  5. ANZEMET [Concomitant]
     Route: 065
  6. DEXAMETHASONE TAB [Concomitant]
     Route: 065
  7. COMPAZINE [Concomitant]
     Route: 065

REACTIONS (2)
  - CHEST PAIN [None]
  - DYSPNOEA [None]
